FAERS Safety Report 9821924 (Version 1)
Quarter: 2014Q1

REPORT INFORMATION
  Report Type: Spontaneous
  Country: US (occurrence: US)
  Receive Date: 20140116
  Receipt Date: 20140116
  Transmission Date: 20141002
  Serious: Yes (Death)
  Sender: FDA-Public Use
  Company Number: US-PFIZER INC-2014007720

PATIENT
  Age: 32 Year
  Sex: Male

DRUGS (5)
  1. DEXTROMETHORPHAN HBR [Suspect]
  2. CODEINE [Suspect]
  3. COCAINE [Suspect]
  4. HEROIN [Suspect]
  5. LEVAMISOLE [Suspect]

REACTIONS (3)
  - Drug abuse [Fatal]
  - Cardiac arrest [Fatal]
  - Respiratory arrest [Fatal]
